FAERS Safety Report 6037556-1 (Version None)
Quarter: 2009Q1

REPORT INFORMATION
  Report Type: 
  Country: None (occurrence: None)
  Receive Date: 20090114
  Receipt Date: 20090102
  Transmission Date: 20090719
  Serious: Yes (Other)
  Sender: FDA-Public Use
  Company Number: US-PFIZER INC-2008003024

PATIENT
  Sex: Female

DRUGS (6)
  1. GEODON [Suspect]
  2. LAMICTAL [Suspect]
  3. EFFEXOR [Suspect]
  4. DEPAKOTE [Concomitant]
  5. SEROQUEL [Concomitant]
  6. RISPERIDONE [Concomitant]

REACTIONS (17)
  - ABASIA [None]
  - ADVERSE DRUG REACTION [None]
  - ANXIETY [None]
  - DISABILITY [None]
  - DRUG INEFFECTIVE [None]
  - DRUG TOXICITY [None]
  - FALL [None]
  - FEELING ABNORMAL [None]
  - INSOMNIA [None]
  - LOWER LIMB FRACTURE [None]
  - MANIA [None]
  - NYSTAGMUS [None]
  - PARKINSON'S DISEASE [None]
  - SCHIZOAFFECTIVE DISORDER [None]
  - TARDIVE DYSKINESIA [None]
  - VISUAL IMPAIRMENT [None]
  - WEIGHT INCREASED [None]
